FAERS Safety Report 17276161 (Version 1)
Quarter: 2020Q1

REPORT INFORMATION
  Report Type: Spontaneous
  Country: US (occurrence: US)
  Receive Date: 20200116
  Receipt Date: 20200116
  Transmission Date: 20200409
  Serious: Yes (Hospitalization)
  Sender: FDA-Public Use
  Company Number: US-US WORLDMEDS, LLC-USW202001-000035

PATIENT
  Age: 72 Year
  Sex: Male

DRUGS (3)
  1. LOPRESSOR [Concomitant]
     Active Substance: METOPROLOL TARTRATE
     Dosage: UNKNOWN
  2. CARDIZEM [Concomitant]
     Active Substance: DILTIAZEM HYDROCHLORIDE
     Dosage: UNKNOWN
  3. NADOLOL. [Suspect]
     Active Substance: NADOLOL
     Indication: ATRIAL FIBRILLATION
     Dosage: UNKNOWN

REACTIONS (5)
  - Bradycardia [Recovered/Resolved]
  - Hypotension [Recovered/Resolved]
  - Accidental overdose [Unknown]
  - Depressed level of consciousness [Recovered/Resolved]
  - Hypothermia [Recovered/Resolved]
